FAERS Safety Report 7377887-6 (Version None)
Quarter: 2011Q1

REPORT INFORMATION
  Report Type: 
  Country: None (occurrence: None)
  Receive Date: 20110328
  Receipt Date: 20110315
  Transmission Date: 20110831
  Serious: Yes (Hospitalization)
  Sender: FDA-Public Use
  Company Number: US-ACTELION-A-US2010-40825

PATIENT

DRUGS (2)
  1. TRACLEER [Suspect]
     Indication: PULMONARY ARTERIAL HYPERTENSION
     Dosage: UNK
     Route: 048
     Dates: start: 20101005, end: 20110202
  2. TRACLEER [Suspect]
     Dosage: UNK
     Route: 048
     Dates: start: 20110307

REACTIONS (13)
  - DYSPNOEA [None]
  - OEDEMA [None]
  - CYANOSIS [None]
  - CHEST PAIN [None]
  - CONDITION AGGRAVATED [None]
  - WEIGHT INCREASED [None]
  - INCREASED UPPER AIRWAY SECRETION [None]
  - PARAESTHESIA [None]
  - GENERALISED OEDEMA [None]
  - BLOOD GLUCOSE DECREASED [None]
  - ASTHENIA [None]
  - ANAEMIA [None]
  - CHOKING [None]
